FAERS Safety Report 12623486 (Version 1)
Quarter: 2016Q3

REPORT INFORMATION
  Report Type: Spontaneous
  Country: US (occurrence: US)
  Receive Date: 20160804
  Receipt Date: 20160804
  Transmission Date: 20161109
  Serious: No
  Sender: FDA-Public Use
  Company Number: US-ELI_LILLY_AND_COMPANY-US201608001654

PATIENT
  Sex: Male

DRUGS (9)
  1. HUMALOG [Suspect]
     Active Substance: INSULIN LISPRO
     Dosage: 14 U, BEFORE LUNCH
     Route: 065
     Dates: start: 2014
  2. HUMALOG [Suspect]
     Active Substance: INSULIN LISPRO
     Dosage: UNK UNK, PRN
     Route: 065
  3. HUMALOG [Suspect]
     Active Substance: INSULIN LISPRO
     Indication: TYPE 2 DIABETES MELLITUS
     Dosage: 10 U, BEFORE BREAKFAST
     Route: 065
     Dates: start: 2014
  4. LEVEMIR [Concomitant]
     Active Substance: INSULIN DETEMIR
  5. HUMALOG [Suspect]
     Active Substance: INSULIN LISPRO
     Dosage: UNK UNK, PRN
     Route: 065
     Dates: start: 2014
  6. HUMALOG [Suspect]
     Active Substance: INSULIN LISPRO
     Dosage: 14 U, BEFORE LUNCH
     Route: 065
  7. HUMALOG [Suspect]
     Active Substance: INSULIN LISPRO
     Dosage: 27 U, BEFORE SUPPER
     Route: 065
     Dates: start: 2014
  8. HUMALOG [Suspect]
     Active Substance: INSULIN LISPRO
     Dosage: 27 U, BEFORE SUPPER
     Route: 065
  9. HUMALOG [Suspect]
     Active Substance: INSULIN LISPRO
     Dosage: 10 U, BEFORE BREAKFAST
     Route: 065

REACTIONS (2)
  - Blood glucose decreased [Unknown]
  - Hyperhidrosis [Unknown]
